FAERS Safety Report 9700224 (Version 1)
Quarter: 2013Q4

REPORT INFORMATION
  Report Type: Spontaneous
  Country: KR (occurrence: None)
  Receive Date: 20131119
  Receipt Date: 20131119
  Transmission Date: 20140711
  Serious: Yes (Other)
  Sender: FDA-Public Use
  Company Number: 2013P1020911

PATIENT
  Age: 32 Year
  Sex: Male
  Weight: 66 kg

DRUGS (5)
  1. FENTANYL [Suspect]
     Indication: ANAESTHESIA
     Route: 042
  2. METFORMIN [Concomitant]
  3. MESALAZINE [Concomitant]
  4. THIOPENTAL SODIUM [Concomitant]
  5. VECURONIUM [Concomitant]

REACTIONS (6)
  - Pneumonia aspiration [None]
  - Cough [None]
  - Vomiting [None]
  - Oxygen saturation decreased [None]
  - Atelectasis [None]
  - Procedural complication [None]
